FAERS Safety Report 25892029 (Version 1)
Quarter: 2025Q4

REPORT INFORMATION
  Report Type: Spontaneous
  Country: US (occurrence: US)
  Receive Date: 20251007
  Receipt Date: 20251007
  Transmission Date: 20260117
  Serious: Yes (Other)
  Sender: ABBVIE
  Company Number: US-ABBVIE-6492275

PATIENT
  Age: 64 Year
  Sex: Female

DRUGS (1)
  1. VENETOCLAX [Suspect]
     Active Substance: VENETOCLAX
     Indication: Product used for unknown indication
     Route: 048
     Dates: start: 202404

REACTIONS (3)
  - Cardiac operation [Unknown]
  - Diabetes mellitus [Unknown]
  - Meniscus injury [Unknown]

NARRATIVE: CASE EVENT DATE: 20250601
